FAERS Safety Report 9296753 (Version 1)
Quarter: 2013Q2

REPORT INFORMATION
  Report Type: Spontaneous
  Country: US (occurrence: None)
  Receive Date: 20130515
  Receipt Date: 20130515
  Transmission Date: 20140414
  Serious: No
  Sender: FDA-Public Use
  Company Number: THQ2013A03541

PATIENT
  Age: 38 Year
  Sex: Male
  Weight: 89 kg

DRUGS (10)
  1. PREVACID [Suspect]
  2. NEURONTIN [Suspect]
     Indication: CONVULSION PROPHYLAXIS
     Dates: start: 1998
  3. MORPHINE [Concomitant]
  4. LISINOPRIL [Concomitant]
  5. NITROGLYCERIN (GLYCERYL TRINITRATE)(TABLETS) [Concomitant]
  6. ISOSORBIDE MONONITRATE [Concomitant]
  7. METOPROLOL TARTRATE [Concomitant]
  8. CLOPIDOGREL BISULFATE [Concomitant]
  9. ACETYLSALICYLIC ACID [Concomitant]
  10. SIMVASTATIN [Concomitant]

REACTIONS (2)
  - Burning sensation [None]
  - Hiatus hernia [None]
